FAERS Safety Report 6956756-7 (Version None)
Quarter: 2010Q3

REPORT INFORMATION
  Report Type: 
  Country: None (occurrence: None)
  Receive Date: 20100826
  Receipt Date: 20100816
  Transmission Date: 20110219
  Serious: Yes (Other)
  Sender: FDA-Public Use
  Company Number: A-US2010-39071

PATIENT
  Sex: Male

DRUGS (1)
  1. VENTAVIS [Suspect]
     Indication: PRODUCT USED FOR UNKNOWN INDICATION
     Dosage: RESPIRATORY
     Route: 055

REACTIONS (2)
  - BLOOD GLUCOSE FLUCTUATION [None]
  - BLOOD PRESSURE DECREASED [None]
